FAERS Safety Report 4981246-0 (Version None)
Quarter: 2006Q1

REPORT INFORMATION
  Report Type: 
  Country: None (occurrence: None)
  Receive Date: 20060227
  Receipt Date: 20050131
  Transmission Date: 20060701
  Serious: Yes (Life-Threatening, Hospitalization, Other)
  Sender: FDA-Public Use
  Company Number: WAES 0411USA00396

PATIENT
  Age: 73 Year
  Sex: Female
  Weight: 64.8644 kg

DRUGS (5)
  1. ZOCOR [Suspect]
     Indication: CORONARY ARTERY DISEASE
     Dosage: 80 MG/DAILY/PO
     Route: 048
     Dates: start: 20040927, end: 20041028
  2. ALTACE [Concomitant]
  3. PLAVIX [Concomitant]
  4. PROTONIX [Concomitant]
  5. TOPROL-XL [Concomitant]

REACTIONS (5)
  - ALANINE AMINOTRANSFERASE INCREASED [None]
  - ANXIETY [None]
  - ASPARTATE AMINOTRANSFERASE INCREASED [None]
  - RENAL FAILURE ACUTE [None]
  - RHABDOMYOLYSIS [None]
